FAERS Safety Report 16185017 (Version 2)
Quarter: 2019Q2

REPORT INFORMATION
  Report Type: Report from Study
  Country: DK (occurrence: DK)
  Receive Date: 20190411
  Receipt Date: 20190415
  Transmission Date: 20190711
  Serious: No
  Sender: FDA-Public Use
  Company Number: DK-TEVA-2019-DK-1035417

PATIENT
  Age: 12 Year
  Sex: Male
  Weight: 51 kg

DRUGS (3)
  1. DEUTETRABENAZINE [Suspect]
     Active Substance: DEUTETRABENAZINE
     Indication: TOURETTE^S DISORDER
     Dosage: 30 MILLIGRAM DAILY; DEUTETRABENAZINE OR PLACEBO
     Route: 048
     Dates: start: 20190227
  2. MELATONIN [Concomitant]
     Active Substance: MELATONIN
     Indication: INSOMNIA
     Route: 048
     Dates: start: 20160815, end: 20190402
  3. MELATONIN [Concomitant]
     Active Substance: MELATONIN
     Route: 048
     Dates: start: 20190408

REACTIONS (2)
  - Restlessness [Recovering/Resolving]
  - Discomfort [Recovering/Resolving]

NARRATIVE: CASE EVENT DATE: 20190328
